FAERS Safety Report 6270311-6 (Version None)
Quarter: 2009Q3

REPORT INFORMATION
  Report Type: 
  Country: None (occurrence: None)
  Receive Date: 20090716
  Receipt Date: 20090707
  Transmission Date: 20100115
  Serious: Yes (Hospitalization)
  Sender: FDA-Public Use
  Company Number: A0771646A

PATIENT
  Age: 79 Year
  Sex: Female
  Weight: 72.7 kg

DRUGS (9)
  1. AVANDIA [Suspect]
     Indication: DIABETES MELLITUS
     Dosage: 4MG TWICE PER DAY
     Route: 048
     Dates: start: 20010125, end: 20070101
  2. METFORMIN HCL [Concomitant]
  3. INSULIN [Concomitant]
  4. TOPROL-XL [Concomitant]
  5. HYDROCHLOROTHIAZIDE [Concomitant]
  6. LOVASTATIN [Concomitant]
  7. ARICEPT [Concomitant]
  8. DIOVAN [Concomitant]
  9. NORVASC [Concomitant]

REACTIONS (1)
  - CEREBROVASCULAR ACCIDENT [None]
